FAERS Safety Report 24995187 (Version 1)
Quarter: 2025Q1

REPORT INFORMATION
  Report Type: Spontaneous
  Country: DE (occurrence: DE)
  Receive Date: 20250221
  Receipt Date: 20250221
  Transmission Date: 20250408
  Serious: Yes (Other)
  Sender: PFIZER
  Company Number: DE-PFIZER INC-202500038802

PATIENT
  Sex: Male

DRUGS (1)
  1. VYNDAQEL [Suspect]
     Active Substance: TAFAMIDIS MEGLUMINE
     Indication: Acquired ATTR amyloidosis

REACTIONS (2)
  - Inguinal hernia [Not Recovered/Not Resolved]
  - Troponin increased [Not Recovered/Not Resolved]
